FAERS Safety Report 14892492 (Version 10)
Quarter: 2018Q4

REPORT INFORMATION
  Report Type: Spontaneous
  Country: CA (occurrence: CA)
  Receive Date: 20180514
  Receipt Date: 20181001
  Transmission Date: 20190204
  Serious: Yes (Other)
  Sender: FDA-Public Use
  Company Number: CA-CELLTRION INC.-2018CA019726

PATIENT

DRUGS (18)
  1. HCTZ [Concomitant]
     Active Substance: HYDROCHLOROTHIAZIDE
     Dosage: UNK
  2. METFORMIN [Concomitant]
     Active Substance: METFORMIN HYDROCHLORIDE
     Dosage: UNK
  3. IRON [Concomitant]
     Active Substance: IRON
     Dosage: UNK
  4. INFLECTRA [Suspect]
     Active Substance: INFLIXIMAB-DYYB
     Dosage: 770 MG CYCLIC  (EVERY 4 WEEKS)
     Route: 042
     Dates: start: 20180717
  5. OMEGA 3                            /01333901/ [Concomitant]
     Active Substance: FISH OIL\TOCOPHEROL
     Dosage: UNK
  6. LANREOTIDE [Concomitant]
     Active Substance: LANREOTIDE
     Dosage: UNK
     Dates: start: 2015
  7. INFLECTRA [Suspect]
     Active Substance: INFLIXIMAB-DYYB
     Dosage: 770 MG CYCLIC (EVERY 4 WEEKS)
     Route: 042
     Dates: start: 20180619
  8. INFLECTRA [Suspect]
     Active Substance: INFLIXIMAB-DYYB
     Dosage: 770 MG CYCLIC  (EVERY 4 WEEKS)
     Route: 042
     Dates: start: 20180814
  9. INFLECTRA [Suspect]
     Active Substance: INFLIXIMAB-DYYB
     Dosage: 770 MG CYCLIC  (EVERY 4 WEEKS)
     Route: 042
     Dates: start: 20180814, end: 20180814
  10. SYNTHROID [Concomitant]
     Active Substance: LEVOTHYROXINE SODIUM
     Dosage: UNK
  11. VITAMIN D [Concomitant]
     Active Substance: CHOLECALCIFEROL
     Dosage: UNK
  12. PREDNISONE. [Concomitant]
     Active Substance: PREDNISONE
     Dosage: UNK
     Dates: start: 20180325
  13. INFLECTRA [Suspect]
     Active Substance: INFLIXIMAB-DYYB
     Dosage: 740 MG  CYCLIC EVERY 6 WEEKS, THEN EVERY 8 WEEKS (RESCUE DOSE)
     Route: 042
     Dates: start: 20180514, end: 20180514
  14. AMLODIPINE [Concomitant]
     Active Substance: AMLODIPINE BESYLATE
     Dosage: 10 MG ONCE DAILY
     Route: 048
  15. INFLECTRA [Suspect]
     Active Substance: INFLIXIMAB-DYYB
     Indication: COLITIS ULCERATIVE
     Dosage: 374 MG, CYCLIC (0,2,6WEEKS, THEN EVERY 8 WEEKS)
     Route: 042
     Dates: start: 20180409, end: 20180423
  16. INFLECTRA [Suspect]
     Active Substance: INFLIXIMAB-DYYB
     Dosage: 770 MG CYCLIC  (EVERY 4 WEEKS)
     Route: 042
     Dates: start: 20180717
  17. PANTOPRAZOLE [Concomitant]
     Active Substance: PANTOPRAZOLE
     Dosage: UNK
  18. INFLECTRA [Suspect]
     Active Substance: INFLIXIMAB-DYYB
     Dosage: 740 MG CYCLIC EVERY 6 WEEKS, THEN EVERY 8 WEEKS)
     Route: 042
     Dates: start: 20180522, end: 20180522

REACTIONS (7)
  - Body temperature fluctuation [Unknown]
  - Poor venous access [Unknown]
  - Malaise [Unknown]
  - Product use issue [Unknown]
  - Blood pressure fluctuation [Unknown]
  - Drug ineffective [Not Recovered/Not Resolved]
  - Heart rate irregular [Unknown]

NARRATIVE: CASE EVENT DATE: 20180514
